FAERS Safety Report 8801414 (Version 2)
Quarter: 2012Q4

REPORT INFORMATION
  Report Type: 
  Country: JP (occurrence: JP)
  Receive Date: 20120921
  Receipt Date: 20121003
  Transmission Date: 20130627
  Serious: Yes (Hospitalization, Disabling)
  Sender: FDA-Public Use
  Company Number: JP-ROCHE-1129861

PATIENT
  Sex: Female

DRUGS (11)
  1. LUPRAC [Suspect]
     Indication: RENAL FAILURE CHRONIC
     Route: 048
     Dates: start: 20110620, end: 20120605
  2. LUPRAC [Suspect]
     Indication: OEDEMA DUE TO RENAL DISEASE
  3. CELECOX [Suspect]
     Indication: SCIATICA
     Route: 048
     Dates: start: 20110801, end: 20120615
  4. CELECOX [Suspect]
     Indication: OSTEOPOROSIS
  5. OMEPRAL [Suspect]
     Indication: PROPHYLAXIS AGAINST GASTROINTESTINAL ULCER
     Route: 065
     Dates: start: 20110801, end: 20120615
  6. BEZATOL SR [Suspect]
     Indication: DYSLIPIDAEMIA
     Route: 048
     Dates: end: 20120615
  7. ACTONEL [Concomitant]
     Route: 048
  8. BLOPRESS [Concomitant]
     Route: 048
  9. DOXAZOSIN MESILATE [Concomitant]
     Route: 048
  10. AMLODIPINE [Concomitant]
     Route: 048
  11. LOXONIN [Concomitant]
     Route: 061

REACTIONS (2)
  - Renal failure chronic [Unknown]
  - Condition aggravated [Recovered/Resolved with Sequelae]
